FAERS Safety Report 4708495-0 (Version None)
Quarter: 2005Q3

REPORT INFORMATION
  Report Type: 
  Country: None (occurrence: None)
  Receive Date: 20050706
  Receipt Date: 20050623
  Transmission Date: 20060218
  Serious: Yes (Hospitalization)
  Sender: FDA-Public Use
  Company Number: S05-USA-03147-01

PATIENT
  Age: 66 Year
  Sex: Female

DRUGS (6)
  1. CELEXA [Suspect]
     Indication: INSOMNIA
     Dates: start: 20030619
  2. CELEBREX [Suspect]
     Indication: COMPLEX REGIONAL PAIN SYNDROME
  3. VIOXX [Suspect]
     Indication: COMPLEX REGIONAL PAIN SYNDROME
  4. ASPIRIN [Concomitant]
  5. VITAMINS [Concomitant]
  6. CALCIUM GLUCONATE [Concomitant]

REACTIONS (10)
  - CEREBRAL CYST [None]
  - DEEP VEIN THROMBOSIS [None]
  - DYSPNOEA [None]
  - HEAD INJURY [None]
  - MEMORY IMPAIRMENT [None]
  - MYOCARDIAL INFARCTION [None]
  - PALLOR [None]
  - PARAESTHESIA [None]
  - PARAESTHESIA ORAL [None]
  - SCAR [None]
